FAERS Safety Report 6603890-7 (Version None)
Quarter: 2010Q1

REPORT INFORMATION
  Report Type: 
  Country: None (occurrence: None)
  Receive Date: 20100226
  Receipt Date: 20090309
  Transmission Date: 20100710
  Serious: No
  Sender: FDA-Public Use
  Company Number: A0772329A

PATIENT
  Age: 88 Year
  Sex: Female

DRUGS (2)
  1. LAMICTAL CD [Suspect]
     Indication: NEURALGIA
     Dosage: 150MG TWICE PER DAY
     Route: 048
     Dates: start: 20070101
  2. LEVOXYL [Concomitant]

REACTIONS (5)
  - DIZZINESS [None]
  - DRUG INEFFECTIVE [None]
  - HYPERHIDROSIS [None]
  - THERMAL BURN [None]
  - VISION BLURRED [None]
